FAERS Safety Report 22284906 (Version 1)
Quarter: 2023Q2

REPORT INFORMATION
  Report Type: Spontaneous
  Country: US (occurrence: None)
  Receive Date: 20230503
  Receipt Date: 20230503
  Transmission Date: 20230722
  Serious: Yes (Other)
  Sender: FDA-Public Use
  Company Number: None

PATIENT
  Age: 54 Year
  Sex: Female
  Weight: 90.9 kg

DRUGS (1)
  1. DEXTROAMPHET SACCHARAT, AMPHET ASPARTATE, DEXTROAMPHET SULFATE AND AMP [Suspect]
     Active Substance: AMPHETAMINE ASPARTATE\AMPHETAMINE ASPARTATE MONOHYDRATE\AMPHETAMINE SULFATE\DEXTROAMPHETAMINE SACCHA
     Indication: Attention deficit hyperactivity disorder
     Dosage: OTHER QUANTITY : 45 TABLET(S);?OTHER FREQUENCY : 1 IN MORNING 1/2 A;?
     Route: 048
     Dates: start: 20230315, end: 20230501

REACTIONS (10)
  - Drug ineffective [None]
  - Peripheral nervous system function test abnormal [None]
  - Thinking abnormal [None]
  - Disturbance in attention [None]
  - Condition aggravated [None]
  - Anxiety [None]
  - Heart rate increased [None]
  - Postural orthostatic tachycardia syndrome [None]
  - Product substitution issue [None]
  - Product formulation issue [None]

NARRATIVE: CASE EVENT DATE: 20230315
